FAERS Safety Report 4348425-7 (Version None)
Quarter: 2004Q2

REPORT INFORMATION
  Report Type: 
  Country: None (occurrence: None)
  Receive Date: 20040423
  Receipt Date: 20040414
  Transmission Date: 20050107
  Serious: Yes (Other)
  Sender: FDA-Public Use
  Company Number: S04-USA-00541-01

PATIENT
  Age: 52 Year
  Sex: Female

DRUGS (5)
  1. LEXAPRO [Suspect]
     Indication: DEPRESSION
     Dosage: 10 MG QD PO
     Route: 048
     Dates: start: 20030101
  2. INSULIN [Concomitant]
  3. LEVOXYL [Concomitant]
  4. FOSAMAX [Concomitant]
  5. TRAZODONE HCL [Concomitant]

REACTIONS (1)
  - COELIAC DISEASE [None]
